FAERS Safety Report 5730650-1 (Version None)
Quarter: 2008Q2

REPORT INFORMATION
  Report Type: 
  Country: None (occurrence: None)
  Receive Date: 20080507
  Receipt Date: 20080325
  Transmission Date: 20081010
  Serious: Yes (Other)
  Sender: FDA-Public Use
  Company Number: FR-PFIZER INC-2008029575

PATIENT
  Sex: Female

DRUGS (9)
  1. CHANTIX [Suspect]
     Indication: SMOKING CESSATION THERAPY
  2. PREVISCAN [Interacting]
     Dosage: TEXT:THREE-QUARTERS TABLET
  3. ACEBUTOLOL HYDROCHLORIDE [Concomitant]
  4. ZOLPIDEM TARTRATE [Concomitant]
  5. CODOLIPRANE [Concomitant]
  6. FUROSEMIDE [Concomitant]
  7. POTASSIUM CHLORIDE [Concomitant]
  8. DIGOXIN [Concomitant]
  9. TAHOR [Concomitant]

REACTIONS (2)
  - DRUG INTERACTION [None]
  - INTERNATIONAL NORMALISED RATIO INCREASED [None]
